FAERS Safety Report 10047707 (Version 2)
Quarter: 2014Q2

REPORT INFORMATION
  Report Type: Spontaneous
  Country: ES (occurrence: ES)
  Receive Date: 20140331
  Receipt Date: 20140417
  Transmission Date: 20141212
  Serious: No
  Sender: FDA-Public Use
  Company Number: ES-MALLINCKRODT-T201401645

PATIENT
  Age: 64 Year
  Sex: Female

DRUGS (6)
  1. TECHNESCAN LYO MAA [Suspect]
     Indication: VENTILATION/PERFUSION SCAN
     Dosage: NO MORE THAN 300,000 PARTICLES
     Route: 042
     Dates: start: 20140221, end: 20140221
  2. ULTRA TECHNEKOW FM [Suspect]
     Indication: VENTILATION/PERFUSION SCAN
     Dosage: UNK
     Route: 042
     Dates: start: 20140221, end: 20140221
  3. INSULINE [Concomitant]
  4. POVIDONE IODINE [Concomitant]
  5. CALCIUM [Concomitant]
  6. MOXIFLOXACIN [Concomitant]

REACTIONS (1)
  - Microembolism [Unknown]
